FAERS Safety Report 4952616-1 (Version None)
Quarter: 2006Q1

REPORT INFORMATION
  Report Type: 
  Country: None (occurrence: None)
  Receive Date: 20060317
  Receipt Date: 20060308
  Transmission Date: 20060701
  Serious: Yes (Hospitalization, Other)
  Sender: FDA-Public Use
  Company Number: HQWYE642516DEC03

PATIENT
  Age: 61 Year
  Sex: Female
  Weight: 72.3 kg

DRUGS (9)
  1. MYLOTARG [Suspect]
     Indication: ACUTE LYMPHOCYTIC LEUKAEMIA
     Dosage: 15 MG 1X PER 1 DAY INTRAVENOUS
     Route: 042
     Dates: start: 20031126, end: 20031126
  2. SYNTYHROID (LEVOTHYROXINE SODIUM) [Concomitant]
  3. XALATAN [Concomitant]
  4. PREVACID [Concomitant]
  5. CELLCEPT [Concomitant]
  6. NEORAL [Concomitant]
  7. REGLAN [Concomitant]
  8. VALCYTE (VALGENCICLOVIR) [Concomitant]
  9. MAGNESIUM [Concomitant]

REACTIONS (5)
  - ESCHERICHIA URINARY TRACT INFECTION [None]
  - FEBRILE NEUTROPENIA [None]
  - HYPOTENSION [None]
  - INFUSION RELATED REACTION [None]
  - UROSEPSIS [None]
